FAERS Safety Report 17545727 (Version 1)
Quarter: 2020Q1

REPORT INFORMATION
  Report Type: Spontaneous
  Country: CN (occurrence: CN)
  Receive Date: 20200316
  Receipt Date: 20200316
  Transmission Date: 20200409
  Serious: Yes (Other)
  Sender: FDA-Public Use
  Company Number: CN-SA-2020SA061970

PATIENT
  Age: 57 Year
  Sex: Female
  Weight: 71 kg

DRUGS (3)
  1. GLUCOSE [Concomitant]
     Active Substance: DEXTROSE
     Indication: VEHICLE SOLUTION USE
     Dosage: 500 ML, QD
     Route: 041
     Dates: start: 20200205, end: 20200205
  2. CAPECITABINE. [Suspect]
     Active Substance: CAPECITABINE
     Indication: NEOPLASM
     Dosage: 1.5 G, BID
     Route: 048
     Dates: start: 20200206, end: 20200219
  3. ELOXATIN [Suspect]
     Active Substance: OXALIPLATIN
     Indication: NEOPLASM
     Dosage: 200 MG, QD
     Route: 041
     Dates: start: 20200205, end: 20200205

REACTIONS (1)
  - Bone marrow failure [Recovering/Resolving]

NARRATIVE: CASE EVENT DATE: 20200227
